FAERS Safety Report 8564696-5 (Version None)
Quarter: 2012Q3

REPORT INFORMATION
  Report Type: 
  Country: None (occurrence: None)
  Receive Date: 20120803
  Receipt Date: 20120725
  Transmission Date: 20120928
  Serious: Yes (Hospitalization)
  Sender: FDA-Public Use
  Company Number: US-ELI_LILLY_AND_COMPANY-US201207008372

PATIENT
  Sex: Female

DRUGS (1)
  1. HUMATROPE [Suspect]
     Indication: THYROIDITIS
     Dosage: 0.15 U, QD

REACTIONS (3)
  - IMMUNODEFICIENCY [None]
  - HOSPITALISATION [None]
  - THYROID DISORDER [None]
